FAERS Safety Report 5062336-3 (Version None)
Quarter: 2006Q3

REPORT INFORMATION
  Report Type: 
  Country: None (occurrence: None)
  Receive Date: 20060703
  Receipt Date: 20051214
  Transmission Date: 20061208
  Serious: No
  Sender: FDA-Public Use
  Company Number: 2005S1011908

PATIENT
  Age: 51 Year
  Sex: Female

DRUGS (10)
  1. CLOZAPINE [Suspect]
     Indication: SCHIZOPHRENIA
     Dosage: SEE IMAGE
     Route: 048
     Dates: start: 20050302
  2. CLOZAPINE [Suspect]
     Indication: SCHIZOPHRENIA
     Dosage: SEE IMAGE
     Route: 048
     Dates: start: 20050302
  3. PIOGLITAZONE/METFORMIN [Concomitant]
  4. EZETIMIBE [Concomitant]
  5. FLUOXETINE [Concomitant]
  6. HYDROCHLORIDE [Concomitant]
  7. VALPROATE SODIUM [Concomitant]
  8. GEMFIBROZIL [Concomitant]
  9. PROPRANOLOL [Concomitant]
  10. SIMVASTATIN [Concomitant]

REACTIONS (1)
  - GRANULOCYTOPENIA [None]
